FAERS Safety Report 18771064 (Version 14)
Quarter: 2022Q4

REPORT INFORMATION
  Report Type: Report from Study
  Country: US (occurrence: US)
  Receive Date: 20210121
  Receipt Date: 20221110
  Transmission Date: 20230113
  Serious: Yes (Hospitalization, Other)
  Sender: FDA-Public Use
  Company Number: US-TAKEDA-2021TUS003038

PATIENT
  Sex: Female

DRUGS (33)
  1. TEDUGLUTIDE [Suspect]
     Active Substance: TEDUGLUTIDE
     Indication: Short-bowel syndrome
     Dosage: 0.198 MILLILITER, QD
     Route: 058
     Dates: start: 202011
  2. TEDUGLUTIDE [Suspect]
     Active Substance: TEDUGLUTIDE
     Indication: Short-bowel syndrome
     Dosage: 0.198 MILLILITER, QD
     Route: 058
     Dates: start: 202011
  3. TEDUGLUTIDE [Suspect]
     Active Substance: TEDUGLUTIDE
     Indication: Short-bowel syndrome
     Dosage: 0.198 MILLILITER, QD
     Route: 058
     Dates: start: 202011
  4. TEDUGLUTIDE [Suspect]
     Active Substance: TEDUGLUTIDE
     Indication: Short-bowel syndrome
     Dosage: 0.198 MILLILITER, QD
     Route: 058
     Dates: start: 202011
  5. TEDUGLUTIDE [Suspect]
     Active Substance: TEDUGLUTIDE
     Dosage: 1.98 MILLIGRAM, QD
     Route: 058
     Dates: start: 202011
  6. TEDUGLUTIDE [Suspect]
     Active Substance: TEDUGLUTIDE
     Dosage: 1.98 MILLIGRAM, QD
     Route: 058
     Dates: start: 202011
  7. TEDUGLUTIDE [Suspect]
     Active Substance: TEDUGLUTIDE
     Dosage: 1.98 MILLIGRAM, QD
     Route: 058
     Dates: start: 202011
  8. TEDUGLUTIDE [Suspect]
     Active Substance: TEDUGLUTIDE
     Dosage: 1.98 MILLIGRAM, QD
     Route: 058
     Dates: start: 202011
  9. TEDUGLUTIDE [Suspect]
     Active Substance: TEDUGLUTIDE
     Dosage: 1.98 MILLIGRAM, QD
     Route: 058
     Dates: start: 20201130
  10. TEDUGLUTIDE [Suspect]
     Active Substance: TEDUGLUTIDE
     Dosage: 1.98 MILLIGRAM, QD
     Route: 058
     Dates: start: 20201130
  11. TEDUGLUTIDE [Suspect]
     Active Substance: TEDUGLUTIDE
     Dosage: 1.98 MILLIGRAM, QD
     Route: 058
     Dates: start: 20201130
  12. TEDUGLUTIDE [Suspect]
     Active Substance: TEDUGLUTIDE
     Dosage: 1.98 MILLIGRAM, QD
     Route: 058
     Dates: start: 20201130
  13. TEDUGLUTIDE [Suspect]
     Active Substance: TEDUGLUTIDE
     Dosage: 1.98 MILLIGRAM, QD
     Route: 058
     Dates: start: 20201201
  14. TEDUGLUTIDE [Suspect]
     Active Substance: TEDUGLUTIDE
     Dosage: 1.98 MILLIGRAM, QD
     Route: 058
     Dates: start: 20201201
  15. TEDUGLUTIDE [Suspect]
     Active Substance: TEDUGLUTIDE
     Dosage: 1.98 MILLIGRAM, QD
     Route: 058
     Dates: start: 20201201
  16. TEDUGLUTIDE [Suspect]
     Active Substance: TEDUGLUTIDE
     Dosage: 1.98 MILLIGRAM, QD
     Route: 058
     Dates: start: 20201201
  17. TEDUGLUTIDE [Suspect]
     Active Substance: TEDUGLUTIDE
     Dosage: 0.198 MILLILITER
     Route: 058
     Dates: start: 20201201
  18. TEDUGLUTIDE [Suspect]
     Active Substance: TEDUGLUTIDE
     Dosage: 0.198 MILLILITER
     Route: 058
     Dates: start: 20201201
  19. TEDUGLUTIDE [Suspect]
     Active Substance: TEDUGLUTIDE
     Dosage: 0.198 MILLILITER
     Route: 058
     Dates: start: 20201201
  20. TEDUGLUTIDE [Suspect]
     Active Substance: TEDUGLUTIDE
     Dosage: 0.198 MILLILITER
     Route: 058
     Dates: start: 20201201
  21. TEDUGLUTIDE [Suspect]
     Active Substance: TEDUGLUTIDE
     Dosage: UNK, QD
     Route: 058
     Dates: start: 20201203
  22. TEDUGLUTIDE [Suspect]
     Active Substance: TEDUGLUTIDE
     Dosage: UNK, QD
     Route: 058
     Dates: start: 20201203
  23. TEDUGLUTIDE [Suspect]
     Active Substance: TEDUGLUTIDE
     Dosage: UNK, QD
     Route: 058
     Dates: start: 20201203
  24. TEDUGLUTIDE [Suspect]
     Active Substance: TEDUGLUTIDE
     Dosage: UNK, QD
     Route: 058
     Dates: start: 20201203
  25. TEDUGLUTIDE [Suspect]
     Active Substance: TEDUGLUTIDE
     Dosage: 1.98 MILLIGRAM, QD
     Route: 058
     Dates: start: 20210505
  26. TEDUGLUTIDE [Suspect]
     Active Substance: TEDUGLUTIDE
     Dosage: 1.98 MILLIGRAM, QD
     Route: 058
     Dates: start: 20210505
  27. TEDUGLUTIDE [Suspect]
     Active Substance: TEDUGLUTIDE
     Dosage: 1.98 MILLIGRAM, QD
     Route: 058
     Dates: start: 20210505
  28. TEDUGLUTIDE [Suspect]
     Active Substance: TEDUGLUTIDE
     Dosage: 1.98 MILLIGRAM, QD
     Route: 058
     Dates: start: 20210505
  29. TEDUGLUTIDE [Suspect]
     Active Substance: TEDUGLUTIDE
     Dosage: 1.98 MILLIGRAM, QD
     Route: 058
     Dates: start: 20220215
  30. TEDUGLUTIDE [Suspect]
     Active Substance: TEDUGLUTIDE
     Dosage: 1.98 MILLIGRAM, QD
     Route: 058
     Dates: start: 20220215
  31. TEDUGLUTIDE [Suspect]
     Active Substance: TEDUGLUTIDE
     Dosage: 1.98 MILLIGRAM, QD
     Route: 058
     Dates: start: 20220215
  32. TEDUGLUTIDE [Suspect]
     Active Substance: TEDUGLUTIDE
     Dosage: 1.98 MILLIGRAM, QD
     Route: 058
     Dates: start: 20220215
  33. SODIUM CHLORIDE [Concomitant]
     Active Substance: SODIUM CHLORIDE
     Dosage: 3 DOSAGE FORM, QD
     Route: 065

REACTIONS (13)
  - Epistaxis [Unknown]
  - Gout [Unknown]
  - Cholecystitis infective [Recovered/Resolved]
  - Hyponatraemia [Not Recovered/Not Resolved]
  - Fall [Recovered/Resolved]
  - Cholelithiasis [Unknown]
  - Joint swelling [Unknown]
  - Renal function test abnormal [Unknown]
  - Pain [Recovering/Resolving]
  - Sluggishness [Unknown]
  - Muscle spasms [Unknown]
  - Fatigue [Unknown]
  - Injection site haemorrhage [Unknown]
